FAERS Safety Report 15660217 (Version 12)
Quarter: 2020Q1

REPORT INFORMATION
  Report Type: Report from Study
  Country: FR (occurrence: FR)
  Receive Date: 20181127
  Receipt Date: 20200124
  Transmission Date: 20200409
  Serious: Yes (Hospitalization)
  Sender: FDA-Public Use
  Company Number: FR-ACTELION-A-CH2018-180854

PATIENT
  Age: 44 Year
  Sex: Female
  Weight: 61 kg

DRUGS (10)
  1. UPTRAVI [Suspect]
     Active Substance: SELEXIPAG
     Dosage: 400 ?G, BID
     Route: 048
     Dates: start: 20181109
  2. UPTRAVI [Suspect]
     Active Substance: SELEXIPAG
     Dosage: 600 ?G, BID
     Route: 048
     Dates: start: 20190404
  3. UPTRAVI [Suspect]
     Active Substance: SELEXIPAG
     Indication: PULMONARY ARTERIAL HYPERTENSION
     Dosage: 200 ?G, BID
     Route: 048
     Dates: start: 20181018
  4. AMOXICILLIN. [Suspect]
     Active Substance: AMOXICILLIN
     Indication: TOOTH EXTRACTION
     Dosage: 3 G, QD
     Route: 048
     Dates: start: 20181114, end: 20181115
  5. SILDENAFIL. [Concomitant]
     Active Substance: SILDENAFIL
     Indication: PULMONARY ARTERIAL HYPERTENSION
  6. UPTRAVI [Suspect]
     Active Substance: SELEXIPAG
     Dosage: 600 ?G, BID
     Route: 048
     Dates: start: 20181105
  7. BOSENTAN. [Concomitant]
     Active Substance: BOSENTAN
     Indication: PULMONARY ARTERIAL HYPERTENSION
  8. UPTRAVI [Suspect]
     Active Substance: SELEXIPAG
     Dosage: 600 ?G, BID
     Route: 048
     Dates: start: 20190124
  9. UPTRAVI [Suspect]
     Active Substance: SELEXIPAG
     Dosage: 800 ?G, BID
     Route: 048
     Dates: start: 20190321
  10. UPTRAVI [Suspect]
     Active Substance: SELEXIPAG
     Dosage: 400 ?G, BID
     Route: 048
     Dates: start: 20181025

REACTIONS (24)
  - Tooth extraction [Recovered/Resolved]
  - Myalgia [Not Recovered/Not Resolved]
  - Paraesthesia [Recovered/Resolved]
  - Dyspnoea [Recovering/Resolving]
  - Nausea [Not Recovered/Not Resolved]
  - Palpitations [Recovered/Resolved]
  - Weight increased [Unknown]
  - Pain in jaw [Not Recovered/Not Resolved]
  - Dyspnoea exertional [Not Recovered/Not Resolved]
  - Fatigue [Recovered/Resolved]
  - Tracheitis [Recovered/Resolved]
  - Pyrexia [Recovered/Resolved]
  - Cyanosis [Not Recovered/Not Resolved]
  - Oedema [Recovering/Resolving]
  - Cough [Recovering/Resolving]
  - Nasopharyngitis [Recovered/Resolved]
  - Abdominal pain upper [Recovered/Resolved]
  - Dizziness [Not Recovered/Not Resolved]
  - Vomiting [Recovered/Resolved]
  - Joint dislocation [Not Recovered/Not Resolved]
  - Somnolence [Not Recovered/Not Resolved]
  - Limb discomfort [Recovered/Resolved]
  - Headache [Not Recovered/Not Resolved]
  - Flushing [Not Recovered/Not Resolved]

NARRATIVE: CASE EVENT DATE: 20181018
